FAERS Safety Report 9860294 (Version 1)
Quarter: 2014Q1

REPORT INFORMATION
  Report Type: Spontaneous
  Country: US (occurrence: US)
  Receive Date: 20140201
  Receipt Date: 20140201
  Transmission Date: 20141002
  Serious: No
  Sender: FDA-Public Use
  Company Number: US-B.I. PHARMACEUTICALS,INC./RIDGEFIELD-2014-BI-03567BP

PATIENT
  Age: 69 Year
  Sex: Male
  Weight: 118 kg

DRUGS (6)
  1. SPIRIVA [Suspect]
     Indication: CHRONIC OBSTRUCTIVE PULMONARY DISEASE
     Dosage: 18 MCG
     Route: 055
     Dates: start: 2013
  2. PROAIR [Concomitant]
     Dosage: FORMULATION: INHALATION SPRAY
     Route: 055
  3. LEVALLBUTEROL [Concomitant]
     Route: 055
  4. DULERA [Concomitant]
     Dosage: FORMULATION: INHALATION SPRAY
     Route: 055
  5. DALIRESP [Concomitant]
     Dosage: FORMULATION: INHALATION SPRAY
     Route: 055
  6. OXYGEN 1 TO 3 LITERS DEPENDING ON ACTIVITY LEVEL [Concomitant]
     Route: 065
     Dates: start: 2013

REACTIONS (3)
  - Ventricular extrasystoles [Recovered/Resolved]
  - Bradycardia [Not Recovered/Not Resolved]
  - Hypotension [Recovered/Resolved]
